FAERS Safety Report 8961517 (Version 1)
Quarter: 2012Q4

REPORT INFORMATION
  Report Type: 
  Country: US (occurrence: US)
  Receive Date: 20121213
  Receipt Date: 20121213
  Transmission Date: 20130627
  Serious: Yes (Hospitalization)
  Sender: FDA-Public Use
  Company Number: PHHO2008US14039

PATIENT
  Age: 66 Year
  Sex: Female
  Weight: 67.53 kg

DRUGS (11)
  1. AFINITOR [Suspect]
     Indication: METASTATIC MALIGNANT MELANOMA
     Dosage: 150 mg, QD
     Route: 048
     Dates: start: 20081009, end: 20081118
  2. BEVACIZUMAB [Suspect]
     Indication: METASTATIC MALIGNANT MELANOMA
     Dosage: 15 mg/kg, Q3W
     Route: 042
     Dates: start: 20081009, end: 20081030
  3. COUMADIN [Concomitant]
     Dosage: 5 mg, QD
  4. ADVAIR [Concomitant]
  5. CELEBREX [Concomitant]
     Indication: BACK PAIN
     Dosage: 200 mg, QD
  6. NORCO [Concomitant]
     Indication: BACK PAIN
     Dosage: 7.5/500 mg, Q6H
  7. OXYCONTIN [Concomitant]
  8. ZOLOFT [Concomitant]
     Indication: ANXIETY
     Dosage: 50 mg, UNK
  9. HYDROCHLOROTHIAZIDE [Concomitant]
  10. LORAZEPAM [Concomitant]
     Indication: ANXIETY
     Dosage: 0.5 mg, Q6H
  11. TYLENOL W/CODEINE [Concomitant]

REACTIONS (5)
  - Lung infiltration [Recovered/Resolved]
  - Pneumonia [Recovered/Resolved]
  - Dyspnoea [Recovered/Resolved]
  - Musculoskeletal chest pain [Recovered/Resolved]
  - Sleep disorder [Recovered/Resolved]
